FAERS Safety Report 18287259 (Version 2)
Quarter: 2020Q4

REPORT INFORMATION
  Report Type: Spontaneous
  Country: US (occurrence: US)
  Receive Date: 20200921
  Receipt Date: 20201211
  Transmission Date: 20210113
  Serious: Yes (Disabling, Other)
  Sender: FDA-Public Use
  Company Number: US-SA-2020SA253541

PATIENT

DRUGS (1)
  1. ZANTAC [Suspect]
     Active Substance: RANITIDINE HYDROCHLORIDE

REACTIONS (10)
  - Injury [Unknown]
  - Life expectancy shortened [Unknown]
  - Anhedonia [Unknown]
  - Economic problem [Unknown]
  - Gastric cancer [Unknown]
  - Deformity [Unknown]
  - Pain [Unknown]
  - Colorectal cancer [Unknown]
  - Disability [Unknown]
  - Anxiety [Unknown]

NARRATIVE: CASE EVENT DATE: 201901
